FAERS Safety Report 11661088 (Version 4)
Quarter: 2016Q1

REPORT INFORMATION
  Report Type: Report from Study
  Country: FR (occurrence: FR)
  Receive Date: 20151026
  Receipt Date: 20160202
  Transmission Date: 20160525
  Serious: Yes (Other)
  Sender: FDA-Public Use
  Company Number: PHHY2015FR134699

PATIENT
  Age: 75 Year
  Sex: Female

DRUGS (1)
  1. TASIGNA [Suspect]
     Active Substance: NILOTINIB
     Indication: CHRONIC MYELOID LEUKAEMIA
     Route: 048

REACTIONS (4)
  - Vomiting [Unknown]
  - Abdominal pain upper [Unknown]
  - Rib fracture [Unknown]
  - Back pain [Unknown]

NARRATIVE: CASE EVENT DATE: 20140801
